FAERS Safety Report 4754871-X (Version None)
Quarter: 2005Q3

REPORT INFORMATION
  Report Type: 
  Country: None (occurrence: None)
  Receive Date: 20050826
  Receipt Date: 20050826
  Transmission Date: 20060218
  Serious: Yes (Hospitalization)
  Sender: FDA-Public Use
  Company Number: None

PATIENT
  Age: 88 Year
  Sex: Male
  Weight: 82.7 kg

DRUGS (2)
  1. ACCUPRIL [Suspect]
     Dosage: 40 QD (PO)
     Route: 048
  2. COZAAR [Suspect]
     Dosage: 100 PO QD
     Route: 048

REACTIONS (4)
  - ANGIONEUROTIC OEDEMA [None]
  - DYSPHAGIA [None]
  - PALATAL OEDEMA [None]
  - SWOLLEN TONGUE [None]
